FAERS Safety Report 14813147 (Version 1)
Quarter: 2018Q2

REPORT INFORMATION
  Report Type: Spontaneous
  Country: US (occurrence: US)
  Receive Date: 20180426
  Receipt Date: 20180426
  Transmission Date: 20180711
  Serious: No
  Sender: FDA-Public Use
  Company Number: US-MALLINCKRODT-T201703268

PATIENT
  Age: 88 Year

DRUGS (2)
  1. GABA [Suspect]
     Active Substance: HOMEOPATHICS
     Indication: PRODUCT USED FOR UNKNOWN INDICATION
     Dosage: UNK
  2. RESTORIL [Suspect]
     Active Substance: TEMAZEPAM
     Indication: INSOMNIA
     Dosage: 15 MG, BEDTIME
     Route: 065

REACTIONS (3)
  - Somnolence [Unknown]
  - Fall [Unknown]
  - Drug ineffective [Unknown]
